FAERS Safety Report 22521028 (Version 1)
Quarter: 2023Q2

REPORT INFORMATION
  Report Type: Spontaneous
  Country: US (occurrence: None)
  Receive Date: 20230604
  Receipt Date: 20230604
  Transmission Date: 20230722
  Serious: No
  Sender: FDA-Public Use
  Company Number: None

PATIENT
  Sex: Female
  Weight: 84.82 kg

DRUGS (13)
  1. LENALIDOMIDE [Suspect]
     Active Substance: LENALIDOMIDE
     Indication: Plasma cell myeloma
     Dosage: FREQUENCY : DAILY;?
     Route: 048
  2. ALLEGRA [Concomitant]
     Active Substance: FEXOFENADINE HYDROCHLORIDE
  3. ATORVASTATIN [Concomitant]
     Active Substance: ATORVASTATIN
  4. BIOTIN [Concomitant]
     Active Substance: BIOTIN
  5. COLACE [Concomitant]
     Active Substance: DOCUSATE SODIUM
  6. FERROUS SULFATE [Concomitant]
     Active Substance: FERROUS SULFATE
  7. FLONASE [Concomitant]
     Active Substance: FLUTICASONE PROPIONATE
  8. HYDROCHLOROTHIAZIDE [Concomitant]
     Active Substance: HYDROCHLOROTHIAZIDE
  9. LOSARTAN [Concomitant]
     Active Substance: LOSARTAN
  10. MACRODANTIN [Concomitant]
     Active Substance: NITROFURANTOIN
  11. VITAMINS [Concomitant]
     Active Substance: VITAMINS
  12. VITAMIN C [Concomitant]
     Active Substance: ASCORBIC ACID
  13. VITAMIN D3 [Concomitant]
     Active Substance: CHOLECALCIFEROL

REACTIONS (2)
  - White blood cell disorder [None]
  - Platelet count abnormal [None]
